FAERS Safety Report 20794205 (Version 1)
Quarter: 2022Q2

REPORT INFORMATION
  Report Type: Spontaneous
  Country: FR (occurrence: FR)
  Receive Date: 20220506
  Receipt Date: 20220506
  Transmission Date: 20220721
  Serious: Yes (Other)
  Sender: FDA-Public Use
  Company Number: FR-AFSSAPS-AVNT20220258

PATIENT
  Age: 52 Year
  Sex: Female

DRUGS (1)
  1. OXYCODONE [Suspect]
     Active Substance: OXYCODONE
     Indication: Product used for unknown indication
     Dosage: (20 MG LP: 2-0-2, 20 MG LI: 2-2-2)
     Route: 048

REACTIONS (1)
  - Drug use disorder [Not Recovered/Not Resolved]
